FAERS Safety Report 4898155-8 (Version None)
Quarter: 2006Q1

REPORT INFORMATION
  Report Type: 
  Country: None (occurrence: None)
  Receive Date: 20060106
  Receipt Date: 20041108
  Transmission Date: 20060701
  Serious: Yes (Other)
  Sender: FDA-Public Use
  Company Number: HQWYE437012NOV04

PATIENT
  Age: 31 Year
  Sex: Male

DRUGS (3)
  1. PRIMATENE MIST [Suspect]
     Indication: ASTHMA
     Dosage: 1-2 INHALATIONS, 1 IN TO 3 TIMES PER DAY, AS  NEEDED, INHALATION
     Route: 055
     Dates: start: 20041101, end: 20041101
  2. BENADRYL [Concomitant]
  3. ALBUTEROL [Concomitant]

REACTIONS (5)
  - ANXIETY [None]
  - CHEST PAIN [None]
  - HEART RATE INCREASED [None]
  - MOOD SWINGS [None]
  - PHARYNGOLARYNGEAL PAIN [None]
